FAERS Safety Report 23085010 (Version 1)
Quarter: 2023Q4

REPORT INFORMATION
  Report Type: Report from Study
  Country: US (occurrence: US)
  Receive Date: 20231019
  Receipt Date: 20231019
  Transmission Date: 20240109
  Serious: Yes (Other)
  Sender: FDA-Public Use
  Company Number: US-ELI_LILLY_AND_COMPANY-US202310008690

PATIENT
  Age: 69 Year
  Sex: Male

DRUGS (7)
  1. MOUNJARO [Interacting]
     Active Substance: TIRZEPATIDE
     Indication: Weight decreased
     Dosage: 7.5 MG, WEEKLY (1/W)
     Route: 065
  2. METOPROLOL SUCCINATE [Interacting]
     Active Substance: METOPROLOL SUCCINATE
     Indication: Left ventricular failure
     Dosage: 12.5 MG, DAILY
     Route: 065
  3. EMPAGLIFLOZIN [Interacting]
     Active Substance: EMPAGLIFLOZIN
     Indication: Left ventricular failure
     Dosage: 10 MG, DAILY
     Route: 065
  4. SACUBITRIL\VALSARTAN [Interacting]
     Active Substance: SACUBITRIL\VALSARTAN
     Indication: Left ventricular failure
     Dosage: 24/26 MG, BID
     Route: 065
  5. VALSARTAN [Interacting]
     Active Substance: VALSARTAN
     Indication: Left ventricular failure
     Dosage: 40 MG, BID
     Route: 065
  6. VALSARTAN [Interacting]
     Active Substance: VALSARTAN
     Dosage: 40 MG, DAILY
     Route: 065
  7. VALSARTAN [Interacting]
     Active Substance: VALSARTAN
     Dosage: 40 MG, BID
     Route: 065

REACTIONS (8)
  - Hypotension [Recovered/Resolved]
  - Tachycardia [Unknown]
  - Hypovolaemia [Recovered/Resolved]
  - Dizziness [Unknown]
  - Blood creatinine increased [Unknown]
  - Drug interaction [Unknown]
  - Off label use [Unknown]
  - Incorrect dose administered [Unknown]
